FAERS Safety Report 8823307 (Version 2)
Quarter: 2013Q2

REPORT INFORMATION
  Report Type: Spontaneous
  Country: CN (occurrence: CN)
  Receive Date: 20121003
  Receipt Date: 20130605
  Transmission Date: 20140414
  Serious: Yes (Other)
  Sender: FDA-Public Use
  Company Number: CN-ASTRAZENECA-2012SE73691

PATIENT
  Age: 903 Month
  Sex: Male

DRUGS (2)
  1. PULMICORT RESPULES [Suspect]
     Indication: RESPIRATORY DISORDER
     Route: 055
     Dates: start: 20110301, end: 20120401
  2. PULMICORT RESPULES [Suspect]
     Indication: VITILIGO
     Route: 055
     Dates: start: 20110301, end: 20120401

REACTIONS (8)
  - Emphysema [Not Recovered/Not Resolved]
  - Abnormal loss of weight [Not Recovered/Not Resolved]
  - Rhinorrhoea [Not Recovered/Not Resolved]
  - Fatigue [Not Recovered/Not Resolved]
  - Condition aggravated [Not Recovered/Not Resolved]
  - Anxiety [Not Recovered/Not Resolved]
  - Cachexia [Not Recovered/Not Resolved]
  - Drug dose omission [Unknown]
